FAERS Safety Report 10155063 (Version 2)
Quarter: 2014Q2

REPORT INFORMATION
  Report Type: Spontaneous
  Country: GB (occurrence: GB)
  Receive Date: 20140506
  Receipt Date: 20140506
  Transmission Date: 20141212
  Serious: Yes (Hospitalization, Other)
  Sender: FDA-Public Use
  Company Number: PHFR2014GB002438

PATIENT
  Age: 41 Year
  Sex: Male

DRUGS (9)
  1. CLOZARIL [Suspect]
     Indication: SCHIZOPHRENIA
     Dosage: UNK
     Route: 048
     Dates: start: 20040119
  2. CLOZARIL [Suspect]
     Dosage: 700 MG, UNK
     Route: 048
  3. CLOZARIL [Suspect]
     Dosage: 650 MG, UNK
     Route: 048
     Dates: start: 20140424
  4. SODIUM VALPROATE [Concomitant]
     Indication: EPILEPSY
     Dosage: 700 MG, UNK
     Route: 048
  5. SERTRALINE [Concomitant]
     Indication: DEPRESSION
     Dosage: 200 MG, UNK
     Route: 048
  6. PROPRANOLOL [Concomitant]
     Indication: TREMOR
     Dosage: 40 MG, UNK
     Route: 048
  7. PROPRANOLOL [Concomitant]
     Indication: ANXIETY
  8. OMEPRAZOLE [Concomitant]
     Indication: GASTROOESOPHAGEAL REFLUX DISEASE
     Dosage: 40 MG, UNK
     Route: 048
  9. DOMPERIDONE [Concomitant]
     Indication: NAUSEA
     Dosage: 30 MG, UNK
     Route: 048

REACTIONS (6)
  - Deep vein thrombosis [Recovering/Resolving]
  - Hiatus hernia [Not Recovered/Not Resolved]
  - Intussusception [Not Recovered/Not Resolved]
  - Schizophrenia [Not Recovered/Not Resolved]
  - Platelet count increased [Unknown]
  - Antipsychotic drug level increased [Unknown]
